FAERS Safety Report 19406208 (Version 1)
Quarter: 2021Q2

REPORT INFORMATION
  Report Type: Spontaneous
  Country: DK (occurrence: DK)
  Receive Date: 20210611
  Receipt Date: 20210611
  Transmission Date: 20210717
  Serious: Yes (Hospitalization)
  Sender: FDA-Public Use
  Company Number: DK-TEVA-2021-DK-1920163

PATIENT
  Age: 82 Year
  Sex: Female

DRUGS (1)
  1. PREDNISOLONE. [Suspect]
     Active Substance: PREDNISOLONE
     Indication: ARTHRITIS
     Dosage: STRENGTH: 25+5 MG. DOSAGE: 60 MG DAILY WITH REDUCTION IN DOSE.
     Route: 048
     Dates: start: 20201111

REACTIONS (2)
  - Cognitive disorder [Recovering/Resolving]
  - Confusional state [Recovering/Resolving]

NARRATIVE: CASE EVENT DATE: 20201112
